FAERS Safety Report 10277584 (Version 1)
Quarter: 2014Q3

REPORT INFORMATION
  Report Type: Spontaneous
  Country: FR (occurrence: FR)
  Receive Date: 20140704
  Receipt Date: 20140704
  Transmission Date: 20150326
  Serious: Yes (Hospitalization)
  Sender: FDA-Public Use
  Company Number: FR-BRISTOL-MYERS SQUIBB COMPANY-21118674

PATIENT
  Age: 82 Year
  Sex: Male

DRUGS (18)
  1. LAMALINE [Concomitant]
     Active Substance: ACETAMINOPHEN\CAFFEINE\OPIUM
     Indication: PAIN
  2. TRANSIPEG [Concomitant]
     Active Substance: POLYETHYLENE GLYCOL 3350
  3. LOXEN [Concomitant]
     Active Substance: NICARDIPINE HYDROCHLORIDE
  4. SOLUPRED [Concomitant]
     Active Substance: PREDNISOLONE
     Dosage: 1TAB IN MORNING
  5. ACTISKENAN [Concomitant]
     Active Substance: MORPHINE SULFATE
  6. SKENAN [Concomitant]
     Active Substance: MORPHINE SULFATE
     Dosage: 2CAPS
  7. PRIMPERAN [Concomitant]
     Active Substance: METOCLOPRAMIDE HYDROCHLORIDE
  8. NEBIVOLOL [Concomitant]
     Active Substance: NEBIVOLOL
     Dosage: HALF TABLET
  9. DAFALGAN [Concomitant]
     Active Substance: ACETAMINOPHEN
     Indication: PAIN
  10. OMEPRAZOLE. [Concomitant]
     Active Substance: OMEPRAZOLE
     Dosage: 1 TAB
  11. HYDROCHLOROTHIAZIDE\VALSARTAN [Concomitant]
     Active Substance: HYDROCHLOROTHIAZIDE\VALSARTAN
     Dosage: 1DF:160/25  UNIT NOS 1 TAB
  12. IMODIUM [Concomitant]
     Active Substance: LOPERAMIDE HYDROCHLORIDE
  13. DIFFU-K [Concomitant]
     Active Substance: POTASSIUM CHLORIDE
  14. COUMADINE [Suspect]
     Active Substance: WARFARIN SODIUM
     Indication: AORTIC VALVE REPLACEMENT
     Dosage: 1DF: 2 MG/2.5 MG ON ALTERNATE DAYS
     Route: 048
     Dates: start: 20140216
  15. CRESTOR [Concomitant]
     Active Substance: ROSUVASTATIN CALCIUM
     Indication: DYSLIPIDAEMIA
     Route: 048
     Dates: start: 20140216
  16. ALLOPURINOL. [Concomitant]
     Active Substance: ALLOPURINOL
     Route: 048
     Dates: start: 20140216
  17. LOXEN LP [Concomitant]
     Active Substance: NICARDIPINE
     Dosage: 1DF:2 TABLETS DAILY ,TOTAL DOSE 50 UNIT NOS
  18. SPASFON [Concomitant]
     Active Substance: PHLOROGLUCINOL
     Route: 042

REACTIONS (3)
  - Normochromic normocytic anaemia [Recovering/Resolving]
  - Epistaxis [Recovered/Resolved]
  - International normalised ratio increased [Recovered/Resolved]

NARRATIVE: CASE EVENT DATE: 20140217
